FAERS Safety Report 5817426-1 (Version None)
Quarter: 2008Q3

REPORT INFORMATION
  Report Type: 
  Country: None (occurrence: None)
  Receive Date: 20080722
  Receipt Date: 20080715
  Transmission Date: 20090109
  Serious: Yes (Hospitalization)
  Sender: FDA-Public Use
  Company Number: US-ELI_LILLY_AND_COMPANY-US200801004696

PATIENT
  Sex: Male
  Weight: 83.9 kg

DRUGS (6)
  1. ZYPREXA [Suspect]
     Dates: start: 20010430, end: 20020801
  2. ZYPREXA [Suspect]
     Dosage: 10 MG, UNK
     Dates: start: 20010523
  3. ZYPREXA [Suspect]
     Dosage: 10 MG, UNK
     Dates: start: 20010730
  4. ZYPREXA [Suspect]
     Dosage: 5 MG, UNK
     Dates: start: 20011025
  5. ZYPREXA [Suspect]
     Dosage: 10 MG, UNK
     Dates: start: 20011025
  6. SEROQUEL [Concomitant]
     Dates: start: 20010307

REACTIONS (5)
  - CARDIAC OPERATION [None]
  - DIABETES MELLITUS [None]
  - ILEUS PARALYTIC [None]
  - PANCREATITIS [None]
  - PNEUMONIA [None]
